FAERS Safety Report 17961537 (Version 1)
Quarter: 2020Q2

REPORT INFORMATION
  Report Type: Spontaneous
  Country: US (occurrence: US)
  Receive Date: 20200629
  Receipt Date: 20200629
  Transmission Date: 20200714
  Serious: Yes (Death)
  Sender: FDA-Public Use
  Company Number: None

PATIENT
  Age: 71 Year
  Sex: Female
  Weight: 49.9 kg

DRUGS (12)
  1. REMDESIVIR 100MG VIAL [Suspect]
     Active Substance: REMDESIVIR
     Indication: COVID-19
     Route: 042
     Dates: start: 20200528, end: 20200528
  2. PIPERACILLIN AND TAZOBACTAM [Concomitant]
     Active Substance: PIPERACILLIN SODIUM\TAZOBACTAM SODIUM
  3. PANTOPRAZOLE [Concomitant]
     Active Substance: PANTOPRAZOLE
  4. ENOXAPARIN [Concomitant]
     Active Substance: ENOXAPARIN
  5. FUROSEMIDE. [Concomitant]
     Active Substance: FUROSEMIDE
  6. NOREPINEPHRINE. [Concomitant]
     Active Substance: NOREPINEPHRINE
  7. VANCOMYCIN [Concomitant]
     Active Substance: VANCOMYCIN
  8. DOXYCYCLINE. [Concomitant]
     Active Substance: DOXYCYCLINE
  9. INSULIN [Concomitant]
     Active Substance: INSULIN NOS
  10. PROPOFOL. [Concomitant]
     Active Substance: PROPOFOL
  11. REMDESIVIR 100MG VIAL [Suspect]
     Active Substance: REMDESIVIR
     Indication: COVID-19
     Dosage: ?          OTHER FREQUENCY:9 DOSES;?
     Route: 042
     Dates: start: 20200529, end: 20200606
  12. FENTANYLE [Concomitant]

REACTIONS (9)
  - Multiple organ dysfunction syndrome [None]
  - Septic shock [None]
  - Toxic encephalopathy [None]
  - Acute kidney injury [None]
  - Bacteraemia [None]
  - General physical health deterioration [None]
  - Hypernatraemia [None]
  - Unresponsive to stimuli [None]
  - Hepatic failure [None]

NARRATIVE: CASE EVENT DATE: 20200621
